FAERS Safety Report 21814617 (Version 2)
Quarter: 2023Q2

REPORT INFORMATION
  Report Type: Spontaneous
  Country: US (occurrence: US)
  Receive Date: 20230104
  Receipt Date: 20230612
  Transmission Date: 20230721
  Serious: Yes (Other)
  Sender: FDA-Public Use
  Company Number: US-drreddys-SPO/USA/22/0159118

PATIENT
  Age: 50 Year
  Sex: Female

DRUGS (5)
  1. GEMCITABINE [Suspect]
     Active Substance: GEMCITABINE
     Indication: Cholangiocarcinoma
  2. GEMCITABINE [Suspect]
     Active Substance: GEMCITABINE
     Indication: Intraductal proliferative breast lesion
  3. CAPECITABINE [Suspect]
     Active Substance: CAPECITABINE
     Indication: Cholangiocarcinoma
  4. CISPLATIN [Suspect]
     Active Substance: CISPLATIN
     Indication: Intraductal proliferative breast lesion
  5. CISPLATIN [Suspect]
     Active Substance: CISPLATIN
     Indication: Cholangiocarcinoma

REACTIONS (4)
  - Leukopenia [Unknown]
  - Thrombocytopenia [Unknown]
  - Myelodysplastic syndrome [Unknown]
  - Drug ineffective [Unknown]
